FAERS Safety Report 5367319-1 (Version None)
Quarter: 2007Q2

REPORT INFORMATION
  Report Type: 
  Country: None (occurrence: None)
  Receive Date: 20070622
  Receipt Date: 20060720
  Transmission Date: 20071010
  Serious: No
  Sender: FDA-Public Use
  Company Number: US-ASTRAZENECA-2006UW08675

PATIENT
  Age: 77 Year
  Sex: Female
  Weight: 70.3 kg

DRUGS (7)
  1. PULMICORT [Suspect]
     Indication: ASTHMA
     Route: 055
     Dates: start: 20060101
  2. PULMICORT [Suspect]
     Dosage: 400UG IN AM AND 400UG IN PM
     Route: 055
     Dates: start: 20060101
  3. SYNTHROID [Concomitant]
  4. ENALAPRIL [Concomitant]
  5. NORVASC [Concomitant]
  6. PREVACHOL [Concomitant]
  7. ZETIA [Concomitant]

REACTIONS (2)
  - BLOOD PRESSURE FLUCTUATION [None]
  - WEIGHT INCREASED [None]
